FAERS Safety Report 11230205 (Version 2)
Quarter: 2015Q3

REPORT INFORMATION
  Report Type: Spontaneous
  Country: DE (occurrence: None)
  Receive Date: 20150629
  Receipt Date: 20150803
  Transmission Date: 20151125
  Serious: Yes (Other)
  Sender: FDA-Public Use
  Company Number: DEP_03084_2015

PATIENT
  Age: 84 Year
  Sex: Male

DRUGS (4)
  1. PREDNISOLONE. [Concomitant]
     Active Substance: PREDNISOLONE
  2. METAMIZOLE SODIUM [Concomitant]
     Active Substance: METAMIZOLE SODIUM
  3. PALEXIA [Suspect]
     Active Substance: TAPENTADOL HYDROCHLORIDE
     Indication: INTERVERTEBRAL DISC PROTRUSION
     Dosage: (50 MG BID ORAL)?
     Route: 048
     Dates: start: 20150420, end: 20150513
  4. SIRDALUD [Concomitant]
     Active Substance: TIZANIDINE

REACTIONS (1)
  - Jaundice [None]

NARRATIVE: CASE EVENT DATE: 20150515
